FAERS Safety Report 23888421 (Version 1)
Quarter: 2024Q2

REPORT INFORMATION
  Report Type: Spontaneous
  Country: US (occurrence: US)
  Receive Date: 20240523
  Receipt Date: 20240523
  Transmission Date: 20240715
  Serious: Yes (Hospitalization)
  Sender: FDA-Public Use
  Company Number: US-MYLANLABS-2024M1046347

PATIENT
  Age: 50 Year
  Sex: Female

DRUGS (2)
  1. ISOPROTERENOL HYDROCHLORIDE [Suspect]
     Active Substance: ISOPROTERENOL HYDROCHLORIDE
     Indication: Atrial standstill
     Dosage: UNK
     Route: 042
  2. EPINEPHRINE [Concomitant]
     Active Substance: EPINEPHRINE
     Indication: Bradycardia
     Dosage: UNK
     Route: 065

REACTIONS (2)
  - Sinus tachycardia [Recovered/Resolved]
  - Atrial fibrillation [Recovered/Resolved]
